FAERS Safety Report 8521324-2 (Version None)
Quarter: 2012Q3

REPORT INFORMATION
  Report Type: 
  Country: None (occurrence: None)
  Receive Date: 20120719
  Receipt Date: 20120704
  Transmission Date: 20120928
  Serious: Yes (Life-Threatening, Hospitalization)
  Sender: FDA-Public Use
  Company Number: GB-WATSON-2012-11876

PATIENT
  Age: 48 Year
  Sex: Female
  Weight: 102 kg

DRUGS (3)
  1. FENTANYL-100 [Suspect]
     Indication: ANALGESIC THERAPY
     Dosage: 100MCG, UNKNOWN
     Route: 042
  2. ATRACURIUM BESYLATE [Suspect]
     Indication: ENDOTRACHEAL INTUBATION
     Dosage: 30 (UNIT UNK), FREQ UNKNOWN
     Route: 042
  3. PROPOFOL [Suspect]
     Indication: ANAESTHESIA
     Dosage: 200 MG, UNKNOWN
     Route: 065

REACTIONS (4)
  - VENTRICULAR FIBRILLATION [None]
  - CIRCULATORY COLLAPSE [None]
  - ANAPHYLACTOID REACTION [None]
  - TROPONIN INCREASED [None]
